FAERS Safety Report 5493416-6 (Version None)
Quarter: 2007Q4

REPORT INFORMATION
  Report Type: 
  Country: None (occurrence: None)
  Receive Date: 20071023
  Receipt Date: 20071010
  Transmission Date: 20080405
  Serious: Yes (Other)
  Sender: FDA-Public Use
  Company Number: US-ELI_LILLY_AND_COMPANY-US200710002766

PATIENT
  Age: 62 Year
  Sex: Female

DRUGS (8)
  1. PROZAC [Suspect]
     Dates: start: 20010101
  2. CYMBALTA [Suspect]
     Indication: NECK PAIN
     Dosage: 60 MG, DAILY (1/D)
     Route: 048
     Dates: start: 20060101
  3. MECLIZINE [Concomitant]
     Indication: VERTIGO
  4. NAPROSYN [Concomitant]
     Indication: ARTHRITIS
  5. DIOVAN [Concomitant]
     Indication: BLOOD PRESSURE
     Dosage: 1 D/F, UNK
  6. LIPITOR [Concomitant]
  7. NEXIUM [Concomitant]
  8. DIAZEPAM [Concomitant]
     Dosage: 5 MG, EACH MORNING

REACTIONS (7)
  - ANXIETY [None]
  - INITIAL INSOMNIA [None]
  - IRRITABILITY [None]
  - KNEE ARTHROPLASTY [None]
  - NERVOUSNESS [None]
  - SOMNOLENCE [None]
  - WEIGHT INCREASED [None]
